FAERS Safety Report 14772424 (Version 1)
Quarter: 2018Q2

REPORT INFORMATION
  Report Type: Spontaneous
  Country: US (occurrence: US)
  Receive Date: 20180418
  Receipt Date: 20180418
  Transmission Date: 20180711
  Serious: Yes (Other)
  Sender: FDA-Public Use
  Company Number: US-CIPLA LTD.-2018US16074

PATIENT

DRUGS (2)
  1. QUINAPRIL. [Suspect]
     Active Substance: QUINAPRIL
     Indication: BACK INJURY
     Dosage: 20 MG, UNK
     Route: 065
  2. QUINAPRIL. [Suspect]
     Active Substance: QUINAPRIL
     Indication: NEUROPATHY PERIPHERAL
     Dosage: 20 MG, UNK
     Route: 065

REACTIONS (2)
  - Hyperthyroidism [Not Recovered/Not Resolved]
  - Off label use [Unknown]

NARRATIVE: CASE EVENT DATE: 2016
